FAERS Safety Report 8408390-X (Version None)
Quarter: 2012Q2

REPORT INFORMATION
  Report Type: 
  Country: None (occurrence: None)
  Receive Date: 20120604
  Receipt Date: 20120530
  Transmission Date: 20120825
  Serious: Yes (Other)
  Sender: FDA-Public Use
  Company Number: CH-GILEAD-2012-0051907

PATIENT
  Age: 38 Year
  Sex: Female

DRUGS (5)
  1. TRUVADA [Suspect]
     Indication: HIV INFECTION
     Dosage: 1 DF, QD
     Route: 048
     Dates: start: 20110101, end: 20120215
  2. RASILEZ                            /01763601/ [Concomitant]
     Indication: HYPERTENSIVE HEART DISEASE
     Dosage: UNK
  3. PREZISTA [Suspect]
     Indication: HIV INFECTION
     Dosage: 400 MG, QD
     Route: 048
     Dates: start: 20110101, end: 20120215
  4. NORVIR [Suspect]
     Indication: HIV INFECTION
     Dosage: 100 MG, QD
     Route: 048
     Dates: start: 20110101, end: 20120215
  5. KENACORT-A OPHTHALMIC OINTMENT [Suspect]
     Indication: BACK PAIN
     Dosage: 80 MG, ONCE
     Route: 030
     Dates: start: 20120110, end: 20120110

REACTIONS (5)
  - CUSHING'S SYNDROME [None]
  - HYPERTENSION [None]
  - HYPERGLYCAEMIA [None]
  - CUSHINGOID [None]
  - BLOOD CORTISOL DECREASED [None]
